FAERS Safety Report 18942325 (Version 26)
Quarter: 2025Q1

REPORT INFORMATION
  Report Type: Report from Study
  Country: US (occurrence: US)
  Receive Date: 20210225
  Receipt Date: 20250327
  Transmission Date: 20250409
  Serious: Yes (Hospitalization, Other)
  Sender: TAKEDA
  Company Number: US-TAKEDA-US201901617

PATIENT
  Age: 59 Year
  Sex: Female
  Weight: 77 kg

DRUGS (68)
  1. LANADELUMAB [Suspect]
     Active Substance: LANADELUMAB
     Indication: Immune system disorder
     Dosage: 300 MILLIGRAM, Q2WEEKS
     Dates: start: 20181228
  2. LANADELUMAB [Suspect]
     Active Substance: LANADELUMAB
     Dosage: 300 MILLIGRAM, Q2WEEKS
     Dates: start: 20181229
  3. LANADELUMAB [Suspect]
     Active Substance: LANADELUMAB
     Dosage: 300 MILLIGRAM, Q2WEEKS
     Dates: start: 20190515
  4. LANADELUMAB [Suspect]
     Active Substance: LANADELUMAB
     Dosage: 300 MILLIGRAM, Q2WEEKS
  5. FIRAZYR [Suspect]
     Active Substance: ICATIBANT ACETATE
     Indication: Immune system disorder
     Dosage: 30 MILLIGRAM, Q2WEEKS
     Dates: start: 20201202
  6. FIRAZYR [Suspect]
     Active Substance: ICATIBANT ACETATE
  7. KALBITOR [Suspect]
     Active Substance: ECALLANTIDE
     Indication: Hereditary angioedema
  8. KALBITOR [Suspect]
     Active Substance: ECALLANTIDE
     Indication: Immune system disorder
  9. KALBITOR [Suspect]
     Active Substance: ECALLANTIDE
  10. GAMUNEX-C [Suspect]
     Active Substance: HUMAN IMMUNOGLOBULIN G
     Indication: Immunodeficiency common variable
     Dosage: 30 GRAM, Q4WEEKS
     Dates: start: 20040616
  11. GAMUNEX-C [Suspect]
     Active Substance: HUMAN IMMUNOGLOBULIN G
     Indication: Immune system disorder
  12. ROSUVASTATIN CALCIUM [Concomitant]
     Active Substance: ROSUVASTATIN CALCIUM
  13. SOMA [Concomitant]
     Active Substance: CARISOPRODOL
  14. XANAX [Concomitant]
     Active Substance: ALPRAZOLAM
  15. RESTASIS [Concomitant]
     Active Substance: CYCLOSPORINE
  16. SYNTHROID [Concomitant]
     Active Substance: LEVOTHYROXINE SODIUM
  17. VERAPAMIL [Concomitant]
     Active Substance: VERAPAMIL HYDROCHLORIDE
  18. DOXYCYCLINE HYCLATE [Concomitant]
     Active Substance: DOXYCYCLINE HYCLATE
  19. HEPARIN [Concomitant]
     Active Substance: HEPARIN SODIUM
  20. SODIUM CHLORIDE [Concomitant]
     Active Substance: SODIUM CHLORIDE
  21. BERINERT [Concomitant]
     Active Substance: HUMAN C1-ESTERASE INHIBITOR
  22. EPINEPHRINE [Concomitant]
     Active Substance: EPINEPHRINE
  23. DIPHENHYDRAMINE [Concomitant]
     Active Substance: DIPHENHYDRAMINE
  24. SODIUM CHLORIDE [Concomitant]
     Active Substance: SODIUM CHLORIDE
  25. MORPHABOND ER [Concomitant]
     Active Substance: MORPHINE SULFATE
  26. MORPHINE [Concomitant]
     Active Substance: MORPHINE
  27. QNASL [Concomitant]
     Active Substance: BECLOMETHASONE DIPROPIONATE
  28. SEROQUEL [Concomitant]
     Active Substance: QUETIAPINE FUMARATE
  29. AMITRIPTYLINE [Concomitant]
     Active Substance: AMITRIPTYLINE
  30. AZITHROMYCIN [Concomitant]
     Active Substance: AZITHROMYCIN
  31. AUGMENTIN [Concomitant]
     Active Substance: AMOXICILLIN\CLAVULANATE POTASSIUM
  32. LYSTEDA [Concomitant]
     Active Substance: TRANEXAMIC ACID
  33. AMITIZA [Concomitant]
     Active Substance: LUBIPROSTONE
  34. VITAMIN D3 [Concomitant]
     Active Substance: CHOLECALCIFEROL
  35. LINZESS [Concomitant]
     Active Substance: LINACLOTIDE
  36. OLMESARTAN [Concomitant]
     Active Substance: OLMESARTAN
  37. XIIDRA [Concomitant]
     Active Substance: LIFITEGRAST
  38. MUCINEX [Concomitant]
     Active Substance: GUAIFENESIN
  39. ACETAMINOPHEN [Concomitant]
     Active Substance: ACETAMINOPHEN
  40. AMITRIPTYLINE HYDROCHLORIDE [Concomitant]
     Active Substance: AMITRIPTYLINE HYDROCHLORIDE
  41. SAVELLA [Concomitant]
     Active Substance: MILNACIPRAN HYDROCHLORIDE
  42. AMLODIPINE BESYLATE [Concomitant]
     Active Substance: AMLODIPINE BESYLATE
  43. FUROSEMIDE [Concomitant]
     Active Substance: FUROSEMIDE
  44. ASCENIV [Concomitant]
     Active Substance: HUMAN IMMUNOGLOBULIN G
  45. MEMANTINE [Concomitant]
     Active Substance: MEMANTINE
  46. BACLOFEN [Concomitant]
     Active Substance: BACLOFEN
  47. KETOCONAZOLE [Concomitant]
     Active Substance: KETOCONAZOLE
  48. LIDOCAINE [Concomitant]
     Active Substance: LIDOCAINE
  49. ALPRAZOLAM [Concomitant]
     Active Substance: ALPRAZOLAM
  50. BELBUCA [Concomitant]
     Active Substance: BUPRENORPHINE HYDROCHLORIDE
  51. ALBUTEROL SULFATE [Concomitant]
     Active Substance: ALBUTEROL SULFATE
  52. AMOXICILLIN [Concomitant]
     Active Substance: AMOXICILLIN
  53. AZELASTINE HYDROCHLORIDE [Concomitant]
     Active Substance: AZELASTINE HYDROCHLORIDE
  54. BOTOX [Concomitant]
     Active Substance: ONABOTULINUMTOXINA
  55. FLUTICASONE PROPIONATE [Concomitant]
     Active Substance: FLUTICASONE PROPIONATE
  56. LEVOTHYROXINE SODIUM [Concomitant]
     Active Substance: LEVOTHYROXINE SODIUM
  57. CYCLOBENZAPRINE HYDROCHLORIDE [Concomitant]
     Active Substance: CYCLOBENZAPRINE HYDROCHLORIDE
  58. MUCINEX DM [Concomitant]
     Active Substance: DEXTROMETHORPHAN HYDROBROMIDE\GUAIFENESIN
  59. GABAPENTIN [Concomitant]
     Active Substance: GABAPENTIN
  60. Polysporin kids [Concomitant]
  61. SYMBICORT [Concomitant]
     Active Substance: BUDESONIDE\FORMOTEROL FUMARATE DIHYDRATE
  62. OLMESARTAN MEDOXOMIL [Concomitant]
     Active Substance: OLMESARTAN MEDOXOMIL
  63. AMOXICILLIN\CLAVULANATE POTASSIUM [Concomitant]
     Active Substance: AMOXICILLIN\CLAVULANATE POTASSIUM
  64. DOXYCYCLINE [Concomitant]
     Active Substance: DOXYCYCLINE
  65. ICATIBANT [Concomitant]
     Active Substance: ICATIBANT ACETATE
  66. DIPHENHYDRAMINE HYDROCHLORIDE [Concomitant]
     Active Substance: DIPHENHYDRAMINE HYDROCHLORIDE
  67. POTASSIUM CHLORIDE [Concomitant]
     Active Substance: POTASSIUM CHLORIDE
  68. MOTEGRITY [Concomitant]
     Active Substance: PRUCALOPRIDE SUCCINATE

REACTIONS (27)
  - Pneumonia [Unknown]
  - Eye infection [Unknown]
  - Craniocerebral injury [Unknown]
  - Cardiac arrest [Unknown]
  - Neuropathy peripheral [Unknown]
  - Fall [Unknown]
  - Depressed mood [Unknown]
  - Malaise [Unknown]
  - Sinusitis [Unknown]
  - Muscle spasms [Unknown]
  - Respiratory disorder [Unknown]
  - Vomiting [Unknown]
  - Migraine [Unknown]
  - Infection [Unknown]
  - Product availability issue [Unknown]
  - Inappropriate schedule of product administration [Unknown]
  - Product dose omission issue [Unknown]
  - Memory impairment [Unknown]
  - Cognitive disorder [Unknown]
  - Concussion [Unknown]
  - Gait disturbance [Unknown]
  - Balance disorder [Unknown]
  - Hypoaesthesia [Unknown]
  - Illness [Unknown]
  - Headache [Unknown]
  - Upper respiratory tract infection [Unknown]
  - Hereditary angioedema [Unknown]

NARRATIVE: CASE EVENT DATE: 20220131
